FAERS Safety Report 6540463-9 (Version None)
Quarter: 2010Q1

REPORT INFORMATION
  Report Type: 
  Country: None (occurrence: None)
  Receive Date: 20100113
  Receipt Date: 20100103
  Transmission Date: 20100710
  Serious: Yes (Hospitalization)
  Sender: FDA-Public Use
  Company Number: PAR_03295_2009

PATIENT
  Sex: Male

DRUGS (7)
  1. IBUPROFEN [Suspect]
     Indication: PAIN
     Dosage: (1800 MG)
     Dates: start: 20091207
  2. XARELTO          (XARELTO - RIVAROXABAN) (NOT SPECIFIED) [Suspect]
     Indication: KNEE ARTHROPLASTY
     Dosage: (DF ORAL)
     Route: 048
     Dates: start: 20091207, end: 20091209
  3. XARELTO          (XARELTO - RIVAROXABAN) (NOT SPECIFIED) [Suspect]
     Indication: THROMBOSIS PROPHYLAXIS
     Dosage: (DF ORAL)
     Route: 048
     Dates: start: 20091207, end: 20091209
  4. FLOTRIN [Concomitant]
  5. ZINACEF  /00454601/ [Concomitant]
  6. PANTOZOL /01263202/ [Concomitant]
  7. EMBOLEX [Concomitant]

REACTIONS (4)
  - ACTIVATED PARTIAL THROMBOPLASTIN TIME PROLONGED [None]
  - INTERNATIONAL NORMALISED RATIO INCREASED [None]
  - POST PROCEDURAL HAEMORRHAGE [None]
  - PROTHROMBIN TIME PROLONGED [None]
